FAERS Safety Report 6510027-1 (Version None)
Quarter: 2009Q4

REPORT INFORMATION
  Report Type: 
  Country: None (occurrence: None)
  Receive Date: 20091222
  Receipt Date: 20091214
  Transmission Date: 20100525
  Serious: Yes (Hospitalization)
  Sender: FDA-Public Use
  Company Number: JP-ASTRAZENECA-2009SE09244

PATIENT
  Age: 34 Year
  Sex: Female
  Weight: 114 kg

DRUGS (5)
  1. BLOPRESS [Suspect]
     Indication: HYPERTENSION
     Route: 048
     Dates: start: 20010101, end: 20090817
  2. LANSOPRAZOLE [Concomitant]
  3. MIRTAZAPINE [Concomitant]
     Route: 048
  4. TRIAMCINOLONE [Concomitant]
     Route: 061
  5. LORAZEPAM [Concomitant]
     Route: 048

REACTIONS (3)
  - CAESAREAN SECTION [None]
  - DRUG EXPOSURE DURING PREGNANCY [None]
  - OLIGOHYDRAMNIOS [None]
